FAERS Safety Report 24637707 (Version 1)
Quarter: 2024Q4

REPORT INFORMATION
  Report Type: Spontaneous
  Country: US (occurrence: US)
  Receive Date: 20241119
  Receipt Date: 20241119
  Transmission Date: 20250115
  Serious: No
  Sender: PFIZER
  Company Number: US-PFIZER INC-PV202400148286

PATIENT
  Age: 65 Year
  Sex: Female

DRUGS (2)
  1. TUKYSA [Interacting]
     Active Substance: TUCATINIB
     Dosage: 300 MG, 2X/DAY
     Route: 048
  2. TRAMADOL [Interacting]
     Active Substance: TRAMADOL
     Dosage: 25 MG, 2X/DAY

REACTIONS (1)
  - Drug interaction [Unknown]
